FAERS Safety Report 21347878 (Version 1)
Quarter: 2022Q3

REPORT INFORMATION
  Report Type: Report from Study
  Country: KR (occurrence: KR)
  Receive Date: 20220919
  Receipt Date: 20220919
  Transmission Date: 20221026
  Serious: Yes (Other)
  Sender: FDA-Public Use
  Company Number: KR-UCBSA-2022054495

PATIENT

DRUGS (1)
  1. LACOSAMIDE [Suspect]
     Active Substance: LACOSAMIDE
     Indication: Epilepsy
     Dosage: DAILY DOSE 100 MG ?200 MG , 200 MG ?400 MG, 400 MG ?600 MG

REACTIONS (9)
  - Dizziness [Unknown]
  - Chest pain [Unknown]
  - Tremor [Unknown]
  - Headache [Unknown]
  - Ataxia [Unknown]
  - Dysarthria [Unknown]
  - Diplopia [Unknown]
  - Somnolence [Unknown]
  - Drug ineffective [Unknown]
